FAERS Safety Report 10470912 (Version 1)
Quarter: 2014Q3

REPORT INFORMATION
  Report Type: Spontaneous
  Country: US (occurrence: US)
  Receive Date: 20140923
  Receipt Date: 20140923
  Transmission Date: 20150326
  Serious: Yes (Hospitalization)
  Sender: FDA-Public Use
  Company Number: PHHY2014US119723

PATIENT
  Age: 11 Year
  Sex: Male

DRUGS (2)
  1. LIDOCAINE. [Suspect]
     Active Substance: LIDOCAINE
     Indication: JUVENILE IDIOPATHIC ARTHRITIS
     Route: 014
  2. METHYLPREDNISOLONE [Suspect]
     Active Substance: METHYLPREDNISOLONE
     Indication: JUVENILE IDIOPATHIC ARTHRITIS
     Route: 014

REACTIONS (8)
  - Rash [Recovering/Resolving]
  - Embolia cutis medicamentosa [Recovering/Resolving]
  - Feeling hot [Recovering/Resolving]
  - Skin discolouration [Recovering/Resolving]
  - Injection site rash [Recovering/Resolving]
  - Onychomadesis [Unknown]
  - Pain [Recovered/Resolved]
  - Injection site discolouration [Recovering/Resolving]
